FAERS Safety Report 8116563-9 (Version None)
Quarter: 2012Q1

REPORT INFORMATION
  Report Type: 
  Country: None (occurrence: None)
  Receive Date: 20120206
  Receipt Date: 20120126
  Transmission Date: 20120608
  Serious: Yes (Hospitalization)
  Sender: FDA-Public Use
  Company Number: KR-BAXTER-2012BH002827

PATIENT
  Sex: Male
  Weight: 63 kg

DRUGS (6)
  1. EXTRANEAL [Suspect]
     Indication: PERITONEAL DIALYSIS
     Route: 033
     Dates: start: 20091119
  2. ASPIRIN [Concomitant]
     Indication: HYPERTENSION
     Route: 048
  3. DIANEAL [Suspect]
     Indication: PERITONEAL DIALYSIS
     Route: 033
     Dates: start: 20091119
  4. NATEGLINIDE [Concomitant]
     Indication: DIABETES MELLITUS
     Route: 048
  5. ATORVASTATIN [Concomitant]
     Indication: HYPERLIPIDAEMIA
     Route: 048
  6. LASIX [Concomitant]
     Indication: RENAL FAILURE CHRONIC
     Route: 048

REACTIONS (5)
  - DEHYDRATION [None]
  - INADEQUATE DIET [None]
  - NASOPHARYNGITIS [None]
  - WEIGHT DECREASED [None]
  - PAIN [None]
